FAERS Safety Report 19872870 (Version 3)
Quarter: 2021Q4

REPORT INFORMATION
  Report Type: Report from Study
  Country: IE (occurrence: IE)
  Receive Date: 20210922
  Receipt Date: 20211112
  Transmission Date: 20220303
  Serious: Yes (Hospitalization)
  Sender: FDA-Public Use
  Company Number: IE-CELGENE-IRL-20200406932

PATIENT
  Age: 31 Year
  Sex: Male
  Weight: 81 kg

DRUGS (6)
  1. OZANIMOD [Suspect]
     Active Substance: OZANIMOD
     Indication: Crohn^s disease
     Dosage: .92 MILLIGRAM
     Route: 048
     Dates: start: 20191128, end: 20200421
  2. OZANIMOD [Suspect]
     Active Substance: OZANIMOD
     Dosage: .92 MILLIGRAM
     Route: 048
     Dates: start: 20200423, end: 20200525
  3. PREDNISOLONE [Concomitant]
     Active Substance: PREDNISOLONE
     Indication: Crohn^s disease
     Dosage: 10 MILLIGRAM
     Route: 048
     Dates: start: 20200410
  4. PREDNISOLONE [Concomitant]
     Active Substance: PREDNISOLONE
     Dosage: 15 MILLIGRAM
     Route: 048
     Dates: start: 20200120, end: 20200410
  5. COLESEVELAM HYDROCHLORIDE [Concomitant]
     Active Substance: COLESEVELAM HYDROCHLORIDE
     Indication: Crohn^s disease
     Dosage: 625 MILLIGRAM
     Route: 048
     Dates: start: 20200218
  6. NEXIUM [Concomitant]
     Active Substance: ESOMEPRAZOLE MAGNESIUM
     Indication: Prophylaxis
     Dosage: 40 MILLIGRAM
     Route: 048
     Dates: start: 20190201

REACTIONS (1)
  - Anal abscess [Recovered/Resolved]

NARRATIVE: CASE EVENT DATE: 20200420
